FAERS Safety Report 23150119 (Version 1)
Quarter: 2023Q4

REPORT INFORMATION
  Report Type: Report from Study
  Country: AR (occurrence: AR)
  Receive Date: 20231106
  Receipt Date: 20231106
  Transmission Date: 20240110
  Serious: Yes (Other)
  Sender: FDA-Public Use
  Company Number: AR-NOVOPROD-1135140

PATIENT
  Age: 65 Year
  Sex: Female
  Weight: 50 kg

DRUGS (5)
  1. LIOTHYRONINE SODIUM [Concomitant]
     Active Substance: LIOTHYRONINE SODIUM
     Indication: Thyroid cyst
     Dosage: 1 TABLET DAILY
     Route: 048
  2. LEVOTHYROXINE [Concomitant]
     Active Substance: LEVOTHYROXINE
     Indication: Thyroid cyst
     Dosage: 100 MG, QD (1 TABLET DAILY)
     Route: 048
  3. IDEBENONE [Concomitant]
     Active Substance: IDEBENONE
     Indication: Dementia Alzheimer^s type
     Dosage: 45 MG, QD
  4. RIVASTIGMINE [Concomitant]
     Active Substance: RIVASTIGMINE
     Indication: Dementia Alzheimer^s type
     Dosage: 1 PATCH DAILY
  5. NORDITROPIN [Suspect]
     Active Substance: SOMATROPIN
     Indication: Postpartum hypopituitarism
     Dosage: 15 MG, QD
     Dates: start: 20100708

REACTIONS (4)
  - Dizziness [Recovered/Resolved]
  - Loss of consciousness [Recovered/Resolved]
  - Decreased appetite [Unknown]
  - Product dose omission in error [Unknown]

NARRATIVE: CASE EVENT DATE: 20221025
